FAERS Safety Report 10228003 (Version 1)
Quarter: 2014Q2

REPORT INFORMATION
  Report Type: Spontaneous
  Country: US (occurrence: None)
  Receive Date: 20140609
  Receipt Date: 20140609
  Transmission Date: 20141212
  Serious: Yes (Hospitalization, Other)
  Sender: FDA-Public Use
  Company Number: None

PATIENT
  Age: 55 Year
  Sex: Female
  Weight: 63.5 kg

DRUGS (1)
  1. CYMBALTA [Suspect]
     Indication: MAJOR DEPRESSION
     Dates: start: 20110711, end: 20140303

REACTIONS (10)
  - Cerebrovascular accident [None]
  - Malaise [None]
  - Dry mouth [None]
  - Malaise [None]
  - Skin disorder [None]
  - Oropharyngeal pain [None]
  - Neuralgia [None]
  - Arthralgia [None]
  - Unevaluable event [None]
  - Gastric disorder [None]
